FAERS Safety Report 5312270-6 (Version None)
Quarter: 2007Q2

REPORT INFORMATION
  Report Type: 
  Country: None (occurrence: None)
  Receive Date: 20070430
  Receipt Date: 20060911
  Transmission Date: 20071010
  Serious: No
  Sender: FDA-Public Use
  Company Number: 2006UW17766

PATIENT
  Age: 49 Year
  Sex: Female
  Weight: 63.5 kg

DRUGS (4)
  1. NEXIUM [Suspect]
     Indication: GASTROOESOPHAGEAL REFLUX DISEASE
     Route: 048
     Dates: start: 20030101
  2. COLAZAL [Concomitant]
  3. REGLAN [Concomitant]
  4. TOPAMAX [Concomitant]

REACTIONS (4)
  - AMENORRHOEA [None]
  - BLOOD PROLACTIN INCREASED [None]
  - GALACTORRHOEA [None]
  - HEADACHE [None]
